FAERS Safety Report 17769999 (Version 1)
Quarter: 2020Q2

REPORT INFORMATION
  Report Type: Spontaneous
  Country: US (occurrence: US)
  Receive Date: 20200512
  Receipt Date: 20200512
  Transmission Date: 20200714
  Serious: No
  Sender: FDA-Public Use
  Company Number: US-BEH-2020116978

PATIENT
  Age: 47 Year
  Sex: Female

DRUGS (1)
  1. HIZENTRA [Suspect]
     Active Substance: HUMAN IMMUNOGLOBULIN G
     Indication: HYPOGAMMAGLOBULINAEMIA
     Dosage: 22 GRAM, QOW (EVERY 14 DAYS)
     Route: 058
     Dates: start: 20190724

REACTIONS (4)
  - Therapy interrupted [Unknown]
  - Pain [Unknown]
  - No adverse event [Unknown]
  - Pyrexia [Unknown]

NARRATIVE: CASE EVENT DATE: 20200428
